FAERS Safety Report 4764440-3 (Version None)
Quarter: 2005Q3

REPORT INFORMATION
  Report Type: 
  Country: None (occurrence: None)
  Receive Date: 20050906
  Receipt Date: 20050823
  Transmission Date: 20060218
  Serious: Yes (Other)
  Sender: FDA-Public Use
  Company Number: USA0508106289

PATIENT
  Sex: Male

DRUGS (1)
  1. ZYPREXA [Suspect]
     Dates: start: 19980101

REACTIONS (2)
  - DISEASE RECURRENCE [None]
  - PNEUMONIA [None]
